FAERS Safety Report 13853822 (Version 1)
Quarter: 2017Q3

REPORT INFORMATION
  Report Type: Spontaneous
  Country: US (occurrence: US)
  Receive Date: 20170810
  Receipt Date: 20170810
  Transmission Date: 20171127
  Serious: Yes (Other)
  Sender: FDA-Public Use
  Company Number: None

PATIENT
  Age: 27 Year
  Sex: Female
  Weight: 133.36 kg

DRUGS (1)
  1. MESALAMINE, 1.2 G GM [Suspect]
     Active Substance: MESALAMINE
     Indication: CLOSTRIDIUM DIFFICILE INFECTION
     Route: 048
     Dates: start: 20170608, end: 20170809

REACTIONS (1)
  - Rash [None]

NARRATIVE: CASE EVENT DATE: 20170810
